FAERS Safety Report 8951142 (Version 1)
Quarter: 2012Q4

REPORT INFORMATION
  Report Type: 
  Country: GB (occurrence: GB)
  Receive Date: 20121207
  Receipt Date: 20121207
  Transmission Date: 20130627
  Serious: Yes (Hospitalization)
  Sender: FDA-Public Use
  Company Number: GB-PFIZER INC-2012302090

PATIENT
  Age: 56 Year
  Sex: Male
  Weight: 84 kg

DRUGS (7)
  1. GENOTROPIN [Suspect]
     Indication: GROWTH HORMONE DEFICIENCY
     Dosage: 0.3 mg, 1x/day, 7 injections/week
     Route: 058
     Dates: start: 20070305
  2. HYDROCORTISONE [Concomitant]
     Indication: ACTH DECREASED
     Dosage: UNK
     Dates: start: 20010630
  3. TESTOGEL [Concomitant]
     Indication: LUTEINISING HORMONE DEFICIENCY
     Dosage: UNK
     Dates: start: 20040211
  4. TESTOGEL [Concomitant]
     Indication: FOLLICLE-STIMULATING HORMONE DEFICIENCY
  5. TESTOGEL [Concomitant]
     Indication: TESTICULAR HYPOGONADISM
  6. THYROXINE [Concomitant]
     Indication: TSH DECREASED
     Dosage: UNK
     Dates: start: 20070518
  7. THYROXINE [Concomitant]
     Indication: PRIMARY HYPOTHYROIDISM

REACTIONS (1)
  - Pituitary tumour [Recovered/Resolved with Sequelae]
